FAERS Safety Report 7778868-0 (Version None)
Quarter: 2011Q3

REPORT INFORMATION
  Report Type: 
  Country: None (occurrence: None)
  Receive Date: 20110926
  Receipt Date: 20110916
  Transmission Date: 20111222
  Serious: Yes (Hospitalization, Other)
  Sender: FDA-Public Use
  Company Number: US-ACTELION-A-US2011-51379

PATIENT

DRUGS (4)
  1. TRACLEER [Suspect]
     Indication: PULMONARY ARTERIAL HYPERTENSION
     Dosage: 62.5 MG, BID
     Route: 048
     Dates: start: 20110122
  2. ADCIRCA [Concomitant]
  3. TRACLEER [Suspect]
     Dosage: 62.5 MG, BID
     Route: 048
  4. COUMADIN [Concomitant]

REACTIONS (3)
  - TRANSIENT ISCHAEMIC ATTACK [None]
  - NECK PAIN [None]
  - HYPOAESTHESIA [None]
